FAERS Safety Report 20966065 (Version 8)
Quarter: 2023Q2

REPORT INFORMATION
  Report Type: Spontaneous
  Country: CA (occurrence: CA)
  Receive Date: 20220616
  Receipt Date: 20230609
  Transmission Date: 20230722
  Serious: Yes (Other)
  Sender: FDA-Public Use
  Company Number: CA-PFIZER INC-202200821928

PATIENT
  Age: 42 Year
  Sex: Male

DRUGS (2)
  1. ABRILADA [Suspect]
     Active Substance: ADALIMUMAB-AFZB
     Indication: Crohn^s disease
     Dosage: 40 MG, EVERY 2 WEEKS
     Route: 058
     Dates: start: 20220528, end: 2022
  2. ABRILADA [Suspect]
     Active Substance: ADALIMUMAB-AFZB
     Dosage: 40 MG, WEEKLY
     Route: 058
     Dates: start: 2022

REACTIONS (11)
  - Fistula [Recovering/Resolving]
  - Diarrhoea [Recovered/Resolved]
  - Anal fissure [Not Recovered/Not Resolved]
  - Stress [Unknown]
  - Burnout syndrome [Recovering/Resolving]
  - Faeces hard [Not Recovered/Not Resolved]
  - Off label use [Unknown]
  - Device use issue [Unknown]
  - Poor quality device used [Unknown]
  - Drug ineffective [Unknown]
  - Drug level below therapeutic [Unknown]

NARRATIVE: CASE EVENT DATE: 20220101
